FAERS Safety Report 18664623 (Version 3)
Quarter: 2021Q1

REPORT INFORMATION
  Report Type: Spontaneous
  Country: GB (occurrence: GB)
  Receive Date: 20201225
  Receipt Date: 20210225
  Transmission Date: 20210419
  Serious: Yes (Other)
  Sender: FDA-Public Use
  Company Number: GB-BIOVITRUM-2020GB7894

PATIENT
  Age: 66 Year
  Sex: Female

DRUGS (23)
  1. LANSOPRAZOLE. [Concomitant]
     Active Substance: LANSOPRAZOLE
     Dates: start: 2018
  2. BENDROFLUMETHIAZIDE [Concomitant]
     Active Substance: BENDROFLUMETHIAZIDE
     Dates: start: 2013
  3. PREGABALIN. [Concomitant]
     Active Substance: PREGABALIN
     Dates: start: 2013
  4. VOLTAROL [Concomitant]
     Active Substance: DICLOFENAC SODIUM
     Dosage: GEL
     Dates: start: 2013, end: 2016
  5. VITAMIN B?COMPLEX [Concomitant]
     Active Substance: DEXPANTHENOL\NIACINAMIDE\PYRIDOXINE HYDROCHLORIDE\RIBOFLAVIN 5^-PHOSPHATE SODIUM\THIAMINE HYDROCHLORIDE
     Dates: start: 2016
  6. ORFADIN [Suspect]
     Active Substance: NITISINONE
     Indication: ALKAPTONURIA
     Dates: start: 2013
  7. MULTI VIT [Concomitant]
     Active Substance: VITAMINS
     Dates: start: 2014
  8. DICLOFENAC [Concomitant]
     Active Substance: DICLOFENAC
     Dosage: GEL
     Dates: start: 2017
  9. RAMIPRIL. [Concomitant]
     Active Substance: RAMIPRIL
     Dates: start: 2013
  10. AMITRIPTYLINE [Concomitant]
     Active Substance: AMITRIPTYLINE
     Dates: start: 2013
  11. SOLIFENACIN [Concomitant]
     Active Substance: SOLIFENACIN
     Dates: start: 2013
  12. CLOPIDOGREL [Concomitant]
     Active Substance: CLOPIDOGREL BISULFATE
     Dates: start: 2016
  13. GABAPENTIN. [Concomitant]
     Active Substance: GABAPENTIN
     Dates: start: 2018
  14. ETORCOXIB [Concomitant]
     Dates: start: 2013
  15. ALENDRONIC ACID [Concomitant]
     Active Substance: ALENDRONIC ACID
     Dates: start: 2014
  16. LANSOPRAZOLE. [Concomitant]
     Active Substance: LANSOPRAZOLE
     Dates: start: 2017
  17. DOXASOZIN [Concomitant]
     Active Substance: DOXAZOSIN MESYLATE
     Dates: start: 2017
  18. COCODAMOL [Concomitant]
     Active Substance: ACETAMINOPHEN\CODEINE PHOSPHATE
     Dosage: 30/500MG
     Dates: start: 2013
  19. RANITIDINE. [Concomitant]
     Active Substance: RANITIDINE
     Dates: start: 2013
  20. GABAPENTIN. [Concomitant]
     Active Substance: GABAPENTIN
     Dates: start: 2016
  21. VIT D [Concomitant]
     Active Substance: VITAMIN D NOS
     Dates: start: 2014
  22. SIMVASTATIN. [Concomitant]
     Active Substance: SIMVASTATIN
     Dates: start: 2016
  23. BUPRENORPHINE. [Concomitant]
     Active Substance: BUPRENORPHINE
     Dosage: PATCHES
     Dates: start: 2016

REACTIONS (3)
  - Cataract [Not Recovered/Not Resolved]
  - Amino acid level increased [Not Recovered/Not Resolved]
  - Lenticular opacities [Not Recovered/Not Resolved]

NARRATIVE: CASE EVENT DATE: 2014
